FAERS Safety Report 5420439-5 (Version None)
Quarter: 2007Q3

REPORT INFORMATION
  Report Type: 
  Country: None (occurrence: None)
  Receive Date: 20070816
  Receipt Date: 20070809
  Transmission Date: 20080115
  Serious: Yes (Death, Other)
  Sender: FDA-Public Use
  Company Number: 2007SP016256

PATIENT
  Age: 75 Year
  Sex: Female

DRUGS (1)
  1. INTEGRILIN [Suspect]
     Indication: MYOCARDIAL INFARCTION

REACTIONS (5)
  - CREATININE RENAL CLEARANCE DECREASED [None]
  - OVERDOSE [None]
  - PERITONEAL HAEMORRHAGE [None]
  - POST PROCEDURAL HAEMORRHAGE [None]
  - PROCEDURAL COMPLICATION [None]
